FAERS Safety Report 6525222-5 (Version None)
Quarter: 2010Q1

REPORT INFORMATION
  Report Type: 
  Country: None (occurrence: None)
  Receive Date: 20100104
  Receipt Date: 20091224
  Transmission Date: 20100710
  Serious: Yes (Hospitalization)
  Sender: FDA-Public Use
  Company Number: NL-JNJFOC-20091108018

PATIENT
  Sex: Male
  Weight: 54 kg

DRUGS (11)
  1. INFLIXIMAB, RECOMBINANT [Suspect]
     Indication: RHEUMATOID ARTHRITIS
     Route: 042
  2. METHOTREXATE [Suspect]
     Indication: RHEUMATOID ARTHRITIS
     Route: 042
  3. PREDNISONE [Suspect]
     Indication: RHEUMATOID ARTHRITIS
  4. FOSAMAX [Concomitant]
     Indication: OSTEOPOROSIS
  5. CALCICHEW D3 [Concomitant]
     Indication: OSTEOPOROSIS
  6. ASACOL [Concomitant]
     Indication: PAIN
  7. LANTUS [Concomitant]
     Indication: DIABETES MELLITUS
  8. NOVORAPID [Concomitant]
     Indication: DIABETES MELLITUS
  9. OXYBUTYNINE [Concomitant]
     Indication: URINARY TRACT INFECTION
  10. MOVICOLON [Concomitant]
     Indication: CONSTIPATION
  11. FOLIC ACID [Concomitant]
     Indication: RHEUMATOID ARTHRITIS

REACTIONS (6)
  - BLOOD CULTURE POSITIVE [None]
  - CHOLANGITIS [None]
  - CHOLELITHIASIS [None]
  - ENTEROBACTER INFECTION [None]
  - RESPIRATORY FAILURE [None]
  - SEPSIS [None]
